FAERS Safety Report 17772838 (Version 27)
Quarter: 2024Q3

REPORT INFORMATION
  Report Type: Report from Study
  Country: CO (occurrence: CO)
  Receive Date: 20200512
  Receipt Date: 20240729
  Transmission Date: 20241017
  Serious: Yes (Life-Threatening, Hospitalization, Other)
  Sender: NOVARTIS
  Company Number: NVSC2020CO128552

PATIENT
  Sex: Male
  Weight: 70 kg

DRUGS (12)
  1. ELTROMBOPAG OLAMINE [Suspect]
     Active Substance: ELTROMBOPAG OLAMINE
     Indication: Immune thrombocytopenia
     Dosage: 50 MG, QD
     Route: 048
     Dates: start: 20200206
  2. ELTROMBOPAG OLAMINE [Suspect]
     Active Substance: ELTROMBOPAG OLAMINE
     Dosage: 25 MG, QD
     Route: 048
     Dates: start: 202003
  3. ELTROMBOPAG OLAMINE [Suspect]
     Active Substance: ELTROMBOPAG OLAMINE
     Dosage: 50 MG, QD
     Route: 048
     Dates: start: 2020
  4. ELTROMBOPAG OLAMINE [Suspect]
     Active Substance: ELTROMBOPAG OLAMINE
     Dosage: 1 DOSAGE FORM, QD
     Route: 048
  5. ELTROMBOPAG OLAMINE [Suspect]
     Active Substance: ELTROMBOPAG OLAMINE
     Dosage: UNK, QD
     Route: 048
  6. ELTROMBOPAG OLAMINE [Suspect]
     Active Substance: ELTROMBOPAG OLAMINE
     Dosage: 25 MG, QD (5 MONTHS AGO)
     Route: 048
  7. ELTROMBOPAG OLAMINE [Suspect]
     Active Substance: ELTROMBOPAG OLAMINE
     Dosage: 50 MG, Q24H
     Route: 048
  8. ELTROMBOPAG OLAMINE [Suspect]
     Active Substance: ELTROMBOPAG OLAMINE
     Dosage: 50 MG, QD
     Route: 048
  9. ELTROMBOPAG OLAMINE [Suspect]
     Active Substance: ELTROMBOPAG OLAMINE
     Dosage: UNK UNK, QD
     Route: 048
  10. ELTROMBOPAG OLAMINE [Suspect]
     Active Substance: ELTROMBOPAG OLAMINE
     Dosage: UNK
     Route: 065
  11. ELTROMBOPAG OLAMINE [Suspect]
     Active Substance: ELTROMBOPAG OLAMINE
     Dosage: 50 MG, QD
     Route: 048
  12. DESLORATADINE [Concomitant]
     Active Substance: DESLORATADINE
     Indication: Nasal septum deviation
     Dosage: UNK, Q12H
     Route: 048

REACTIONS (52)
  - Platelet count decreased [Not Recovered/Not Resolved]
  - Choking [Unknown]
  - Critical illness [Not Recovered/Not Resolved]
  - General physical health deterioration [Unknown]
  - Nasal neoplasm [Unknown]
  - Penile cancer [Unknown]
  - Urine flow decreased [Recovering/Resolving]
  - Haematemesis [Unknown]
  - Withdrawal syndrome [Unknown]
  - Cholecystitis acute [Unknown]
  - Eye haemorrhage [Unknown]
  - Haemorrhage [Unknown]
  - Leukoencephalopathy [Unknown]
  - Deafness [Unknown]
  - Abdominal pain [Unknown]
  - Genital pain [Unknown]
  - Insomnia [Unknown]
  - Penile swelling [Recovered/Resolved]
  - Chromaturia [Unknown]
  - Gastrointestinal inflammation [Unknown]
  - Malaise [Unknown]
  - Hyperchlorhydria [Unknown]
  - Platelet count abnormal [Unknown]
  - Defaecation disorder [Unknown]
  - Depression [Unknown]
  - Headache [Unknown]
  - Anxiety [Unknown]
  - Mixed anxiety and depressive disorder [Unknown]
  - Sinusitis [Unknown]
  - Cardiovascular disorder [Unknown]
  - Hiatus hernia [Unknown]
  - Pain [Unknown]
  - Visual impairment [Unknown]
  - Acne [Unknown]
  - Tooth loss [Unknown]
  - Nasal polyps [Unknown]
  - Pyrexia [Unknown]
  - Chest pain [Unknown]
  - Vomiting [Unknown]
  - Influenza [Unknown]
  - Diarrhoea [Unknown]
  - Antinuclear antibody positive [Unknown]
  - Neck pain [Unknown]
  - Discouragement [Unknown]
  - Glossitis [Unknown]
  - Haemorrhoids [Unknown]
  - Vision blurred [Unknown]
  - Dizziness [Unknown]
  - Gastritis [Unknown]
  - Product supply issue [Unknown]
  - Drug ineffective [Unknown]
  - Blood blister [Not Recovered/Not Resolved]
